FAERS Safety Report 23369659 (Version 1)
Quarter: 2024Q1

REPORT INFORMATION
  Report Type: Spontaneous
  Country: US (occurrence: None)
  Receive Date: 20240104
  Receipt Date: 20240104
  Transmission Date: 20240409
  Serious: Yes (Hospitalization)
  Sender: FDA-Public Use
  Company Number: None

PATIENT
  Age: 73 Year
  Sex: Female

DRUGS (2)
  1. PANTOPRAZOLE [Suspect]
     Active Substance: PANTOPRAZOLE
     Dosage: FREQUENCY : TWICE A DAY;?
     Route: 048
  2. PREDNISONE [Suspect]
     Active Substance: PREDNISONE
     Dosage: FREQUENCY : 4 TIMES A DAY;?
     Route: 048

REACTIONS (1)
  - Dyspnoea [None]

NARRATIVE: CASE EVENT DATE: 20231122
